FAERS Safety Report 6688544-3 (Version None)
Quarter: 2010Q2

REPORT INFORMATION
  Report Type: 
  Country: None (occurrence: None)
  Receive Date: 20100414
  Receipt Date: 20100408
  Transmission Date: 20101027
  Serious: Yes (Other)
  Sender: FDA-Public Use
  Company Number: 2010SP020395

PATIENT
  Age: 83 Year
  Sex: Female

DRUGS (6)
  1. NASONEX [Suspect]
     Indication: DRUG USE FOR UNKNOWN INDICATION
     Dosage: QD;NAS
     Route: 045
  2. COZAAR [Concomitant]
  3. EZETROL [Concomitant]
  4. FLOVENT [Concomitant]
  5. OMEPRAZOLE [Concomitant]
  6. WARFARIN SODIUM [Concomitant]

REACTIONS (2)
  - BLISTER [None]
  - DYSURIA [None]
